FAERS Safety Report 5877834-X (Version None)
Quarter: 2008Q3

REPORT INFORMATION
  Report Type: 
  Country: None (occurrence: None)
  Receive Date: 20080908
  Receipt Date: 20080908
  Transmission Date: 20090109
  Serious: Yes (Death, Hospitalization)
  Sender: FDA-Public Use
  Company Number: None

PATIENT
  Age: 63 Year
  Sex: Female
  Weight: 61.2356 kg

DRUGS (5)
  1. ADVAIR DISKUS 100/50 [Suspect]
     Indication: ASTHMA
     Dosage: ONE INHALATION TWICE A DAY INHAL
     Route: 055
     Dates: start: 20080123, end: 20080127
  2. ADVAIR DISKUS 100/50 [Suspect]
     Indication: DYSPNOEA
     Dosage: ONE INHALATION TWICE A DAY INHAL
     Route: 055
     Dates: start: 20080123, end: 20080127
  3. ALBUTEROL [Concomitant]
  4. DILTIAZEM [Concomitant]
  5. GLYBURIDE [Concomitant]

REACTIONS (3)
  - DRUG INEFFECTIVE [None]
  - DYSPNOEA [None]
  - MYOCARDIAL INFARCTION [None]
